FAERS Safety Report 5905838-7 (Version None)
Quarter: 2008Q4

REPORT INFORMATION
  Report Type: 
  Country: None (occurrence: None)
  Receive Date: 20081002
  Receipt Date: 20080923
  Transmission Date: 20090506
  Serious: Yes (Other)
  Sender: FDA-Public Use
  Company Number: DE-ASTRAZENECA-2008PK02134

PATIENT
  Age: 32 Year
  Sex: Female

DRUGS (1)
  1. SYMBICORT TURBOHALER [Suspect]
     Dosage: 160/4.5 UG
     Route: 055

REACTIONS (1)
  - ABORTION SPONTANEOUS [None]
